FAERS Safety Report 11209509 (Version 1)
Quarter: 2015Q2

REPORT INFORMATION
  Report Type: Spontaneous
  Country: US (occurrence: US)
  Receive Date: 20150622
  Receipt Date: 20150622
  Transmission Date: 20150821
  Serious: Yes (Hospitalization)
  Sender: FDA-Public Use
  Company Number: US-MEDA-2015060005

PATIENT
  Sex: Female
  Weight: 71 kg

DRUGS (3)
  1. SOMA [Suspect]
     Active Substance: CARISOPRODOL
     Indication: PAIN
  2. OXYCONTIN [Concomitant]
     Active Substance: OXYCODONE HYDROCHLORIDE
     Indication: PAIN
     Dates: start: 1995
  3. FENTANYL TRANSDERMAL SYSTEM [Concomitant]
     Active Substance: FENTANYL
     Indication: PAIN
     Dates: start: 1991, end: 1995

REACTIONS (1)
  - Drug ineffective [Not Recovered/Not Resolved]
